FAERS Safety Report 8246046-7 (Version None)
Quarter: 2012Q1

REPORT INFORMATION
  Report Type: 
  Country: None (occurrence: None)
  Receive Date: 20120328
  Receipt Date: 20120328
  Transmission Date: 20120608
  Serious: Yes (Other)
  Sender: FDA-Public Use
  Company Number: None

PATIENT
  Sex: Male
  Weight: 138.8007 kg

DRUGS (3)
  1. VICTOZA [Suspect]
     Indication: TYPE 2 DIABETES MELLITUS
     Dosage: .06 MCG
     Dates: start: 20120303
  2. VICTOZA [Suspect]
     Indication: TYPE 2 DIABETES MELLITUS
     Dosage: .06 MCG
     Dates: start: 20120304
  3. VICTOZA [Suspect]
     Indication: TYPE 2 DIABETES MELLITUS
     Dosage: .06 MCG
     Dates: start: 20120302

REACTIONS (8)
  - DIARRHOEA [None]
  - ASTHENIA [None]
  - HYPERHIDROSIS [None]
  - MICTURITION FREQUENCY DECREASED [None]
  - HEADACHE [None]
  - IRRITABILITY [None]
  - GASTROINTESTINAL HAEMORRHAGE [None]
  - NAUSEA [None]
